FAERS Safety Report 4279964-5 (Version None)
Quarter: 2004Q1

REPORT INFORMATION
  Report Type: 
  Country: None (occurrence: None)
  Receive Date: 20040126
  Receipt Date: 20040119
  Transmission Date: 20041129
  Serious: Yes (Hospitalization, Other)
  Sender: FDA-Public Use
  Company Number: FRWYE517319JAN04

PATIENT
  Age: 56 Year
  Sex: Male

DRUGS (2)
  1. TAZOCILLINE (PIPERACILLIN/TAZOBACTAM, INJECTION) [Suspect]
     Dates: start: 20031211, end: 20031218
  2. AMIKACIN [Concomitant]

REACTIONS (4)
  - ENTEROCOCCAL INFECTION [None]
  - ESCHERICHIA INFECTION [None]
  - PERITONITIS BACTERIAL [None]
  - RENAL FAILURE ACUTE [None]
